FAERS Safety Report 4981535-X (Version None)
Quarter: 2006Q2

REPORT INFORMATION
  Report Type: 
  Country: None (occurrence: None)
  Receive Date: 20060419
  Receipt Date: 20060330
  Transmission Date: 20061013
  Serious: Yes (Hospitalization, Other)
  Sender: FDA-Public Use
  Company Number: US200603007296

PATIENT
  Age: 56 Year
  Sex: Male

DRUGS (1)
  1. HUMULIN R [Suspect]
     Dosage: SLIDING SCALE, SUBCUTANEOUS
     Route: 058
     Dates: start: 20040301, end: 20051201

REACTIONS (2)
  - LIVER TRANSPLANT REJECTION [None]
  - PHARMACEUTICAL PRODUCT COMPLAINT [None]
